FAERS Safety Report 10057868 (Version 3)
Quarter: 2014Q3

REPORT INFORMATION
  Report Type: Spontaneous
  Country: FR (occurrence: None)
  Receive Date: 20140327
  Receipt Date: 20140701
  Transmission Date: 20150326
  Serious: Yes (Life-Threatening, Hospitalization)
  Sender: FDA-Public Use
  Company Number: GAM-102-14-FR

PATIENT
  Age: 75 Year
  Sex: Female

DRUGS (6)
  1. OCTAGAM IMMUNE GLOBULIN (HUMAN) [Suspect]
     Active Substance: HUMAN IMMUNOGLOBULIN G
     Indication: POLYNEUROPATHY
     Route: 042
     Dates: start: 20130312, end: 20130712
  2. ENOXAPARIN [Concomitant]
     Active Substance: ENOXAPARIN
  3. ROSUVASTATIN [Concomitant]
     Active Substance: ROSUVASTATIN
  4. DABIGATRAN [Concomitant]
     Active Substance: DABIGATRAN
  5. ATENOLOL. [Concomitant]
     Active Substance: ATENOLOL
  6. RIVAROXABAN [Concomitant]
     Active Substance: RIVAROXABAN

REACTIONS (14)
  - Renal failure [None]
  - Urinary tract infection [None]
  - Encephalopathy allergic [None]
  - Oesophagitis ulcerative [None]
  - Red blood cell count decreased [None]
  - Haemoglobin decreased [None]
  - Encephalitis [None]
  - Oesophagitis haemorrhagic [None]
  - Platelet count decreased [None]
  - Enterobacter infection [None]
  - Haemodynamic instability [None]
  - Tachycardia [None]
  - Meningitis aseptic [None]
  - Dysphagia [None]

NARRATIVE: CASE EVENT DATE: 201312
